FAERS Safety Report 19609133 (Version 3)
Quarter: 2021Q3

REPORT INFORMATION
  Report Type: Spontaneous
  Country: IN (occurrence: IN)
  Receive Date: 20210726
  Receipt Date: 20210816
  Transmission Date: 20211014
  Serious: Yes (Death, Life-Threatening, Hospitalization)
  Sender: FDA-Public Use
  Company Number: IN-DRREDDYS-SPO/IND/21/0137860

PATIENT
  Age: 70 Year
  Sex: Male

DRUGS (5)
  1. CAPECITABINE. [Suspect]
     Active Substance: CAPECITABINE
     Indication: PANCREATIC CARCINOMA METASTATIC
     Dosage: (1250 MG/M2/DAY) FOR 14 DAYS ON AND 7 DAYS OFF WITHIN A 21 DAY CYCLE
     Dates: start: 20200201
  2. FILGRASTIM [Suspect]
     Active Substance: FILGRASTIM
     Indication: NEUTROPENIA
     Route: 058
  3. WOSULIN [Concomitant]
     Active Substance: INSULIN HUMAN
     Indication: DIABETES MELLITUS
     Dosage: 30/70 INJECTION SQ 24 U?0?30U
  4. AMLODIPINE [Concomitant]
     Active Substance: AMLODIPINE BESYLATE
     Indication: HYPERTENSION
  5. GLIMEPIRIDE. [Concomitant]
     Active Substance: GLIMEPIRIDE
     Indication: DIABETES MELLITUS

REACTIONS (12)
  - Toxicity to various agents [Fatal]
  - Candida infection [Unknown]
  - Drug hypersensitivity [Fatal]
  - Mouth haemorrhage [Not Recovered/Not Resolved]
  - Conjunctival erosion [Unknown]
  - Stevens-Johnson syndrome [Fatal]
  - Renal impairment [Fatal]
  - Mouth ulceration [Unknown]
  - Drug ineffective [Unknown]
  - Unresponsive to stimuli [Fatal]
  - Blood glucose increased [Unknown]
  - Conjunctival haemorrhage [Unknown]

NARRATIVE: CASE EVENT DATE: 202002
